FAERS Safety Report 15485999 (Version 1)
Quarter: 2018Q4

REPORT INFORMATION
  Report Type: Spontaneous
  Country: US (occurrence: US)
  Receive Date: 20181011
  Receipt Date: 20181011
  Transmission Date: 20190205
  Serious: No
  Sender: FDA-Public Use
  Company Number: US-AMGEN-USASL2018139173

PATIENT

DRUGS (1)
  1. AIMOVIG [Suspect]
     Active Substance: ERENUMAB-AOOE
     Indication: PRODUCT USED FOR UNKNOWN INDICATION
     Dosage: UNK
     Route: 065
     Dates: start: 2018

REACTIONS (10)
  - Vision blurred [Unknown]
  - Nausea [Unknown]
  - Diarrhoea [Unknown]
  - Migraine [Unknown]
  - Muscle spasms [Unknown]
  - Fatigue [Unknown]
  - Alopecia [Unknown]
  - Constipation [Unknown]
  - Memory impairment [Unknown]
  - Dizziness [Unknown]

NARRATIVE: CASE EVENT DATE: 2018
